FAERS Safety Report 4638154-4 (Version None)
Quarter: 2005Q2

REPORT INFORMATION
  Report Type: 
  Country: None (occurrence: None)
  Receive Date: 20050418
  Receipt Date: 20050330
  Transmission Date: 20051028
  Serious: Yes (Hospitalization)
  Sender: FDA-Public Use
  Company Number: PHEH2005US03747

PATIENT
  Age: 55 Year
  Sex: Male
  Weight: 95 kg

DRUGS (5)
  1. LOTREL [Suspect]
     Indication: HYPERTENSION
     Dosage: 5 MG AMLOD/20 MG BENAZ QD
     Route: 048
     Dates: end: 20050207
  2. CLONIDINE HCL [Suspect]
     Dosage: 0.2 MG, UNK
     Route: 048
     Dates: start: 20050207, end: 20050207
  3. LIPITOR [Concomitant]
     Dosage: UNK, UNK
     Dates: end: 20050207
  4. VENLAFAXINE [Concomitant]
     Dosage: UNK, UNK
     Dates: end: 20050207
  5. LEVOTHYROXINE SODIUM [Concomitant]
     Indication: THYROID DISORDER
     Dosage: .175

REACTIONS (10)
  - ANAEMIA [None]
  - BRADYCARDIA [None]
  - CARDIAC PACEMAKER INSERTION [None]
  - DRUG INTERACTION POTENTIATION [None]
  - DRY MOUTH [None]
  - HEART RATE DECREASED [None]
  - HYPOTENSION [None]
  - MEDICATION ERROR [None]
  - NEPHRECTOMY [None]
  - RENAL CELL CARCINOMA STAGE UNSPECIFIED [None]
